FAERS Safety Report 8084632-8 (Version None)
Quarter: 2012Q1

REPORT INFORMATION
  Report Type: 
  Country: None (occurrence: None)
  Receive Date: 20120128
  Receipt Date: 20110331
  Transmission Date: 20120608
  Serious: No
  Sender: FDA-Public Use
  Company Number: US-ABBOTT-11P-163-0715366-00

PATIENT
  Age: 41 Year
  Sex: Female

DRUGS (3)
  1. HUMIRA [Suspect]
     Indication: CROHN'S DISEASE
     Dates: start: 20101007, end: 20110310
  2. PREDNISONE TAB [Concomitant]
     Indication: PRODUCT USED FOR UNKNOWN INDICATION
     Dosage: 10MG DAILY WHILE ON HUMIRA PEN
  3. PREDNISONE TAB [Concomitant]
     Dosage: CURRENT DOSE 20MG DAILY

REACTIONS (4)
  - DRUG INEFFECTIVE [None]
  - ECZEMA [None]
  - GASTROINTESTINAL HAEMORRHAGE [None]
  - CROHN'S DISEASE [None]
